FAERS Safety Report 4353640-2 (Version None)
Quarter: 2004Q2

REPORT INFORMATION
  Report Type: 
  Country: None (occurrence: None)
  Receive Date: 20040430
  Receipt Date: 20040421
  Transmission Date: 20050107
  Serious: Yes (Hospitalization)
  Sender: FDA-Public Use
  Company Number: CIP04000734

PATIENT
  Age: 67 Year
  Sex: Female

DRUGS (4)
  1. BENET(RISEDRONATE SODIUM) TABLET, 2.5MG [Suspect]
     Indication: OSTEOPOROSIS
     Dosage: 2.5 MG ONE DOSE ONLY, ORAL
     Route: 048
     Dates: start: 20040326, end: 20040327
  2. NORVASC /DEN/ (AMLODIPINE BESILATE) [Concomitant]
  3. KERLONE [Concomitant]
  4. LOCHOL (FLUVASTATIN SODIUM) [Concomitant]

REACTIONS (12)
  - ANOREXIA [None]
  - ASPARTATE AMINOTRANSFERASE INCREASED [None]
  - BLOOD CREATINE PHOSPHOKINASE INCREASED [None]
  - BLOOD LACTATE DEHYDROGENASE INCREASED [None]
  - BLOOD PRESSURE INCREASED [None]
  - FEELING ABNORMAL [None]
  - HEADACHE [None]
  - HEPATIC FUNCTION ABNORMAL [None]
  - MYOGLOBIN BLOOD INCREASED [None]
  - NAUSEA [None]
  - RASH [None]
  - SWELLING FACE [None]
